FAERS Safety Report 7340773-1 (Version None)
Quarter: 2011Q1

REPORT INFORMATION
  Report Type: 
  Country: None (occurrence: None)
  Receive Date: 20110309
  Receipt Date: 20110301
  Transmission Date: 20110831
  Serious: Yes (Death)
  Sender: FDA-Public Use
  Company Number: MX-SANOFI-AVENTIS-2011SA012882

PATIENT
  Age: 88 Year
  Sex: Female

DRUGS (2)
  1. INSULIN GLARGINE [Suspect]
     Indication: TYPE 2 DIABETES MELLITUS
     Dates: start: 20060101, end: 20110128
  2. CAPTOPRIL [Concomitant]
     Route: 048

REACTIONS (1)
  - THROMBOSIS MESENTERIC VESSEL [None]
